FAERS Safety Report 7300912-5 (Version None)
Quarter: 2011Q1

REPORT INFORMATION
  Report Type: 
  Country: None (occurrence: None)
  Receive Date: 20110104
  Receipt Date: 20100517
  Transmission Date: 20110831
  Serious: Yes (Other)
  Sender: FDA-Public Use
  Company Number: 235162USA

PATIENT
  Age: 81 Year
  Sex: Female
  Weight: 52.0276 kg

DRUGS (7)
  1. ESTROPIPATE [Suspect]
     Indication: POSTMENOPAUSE
  2. COLESEVELAM HYDROCHLORIDE [Concomitant]
  3. SITAGLIPTIN [Concomitant]
  4. ESTROPIPATE [Suspect]
     Indication: POSTMENOPAUSE
     Dosage: (0.625 MG), ORAL
     Route: 048
  5. METFORMIN HCL [Concomitant]
  6. ATORVASTATIN CALCIUM [Concomitant]
  7. IRBESARTAN [Concomitant]

REACTIONS (8)
  - BODY HEIGHT DECREASED [None]
  - NIGHT SWEATS [None]
  - WEIGHT DECREASED [None]
  - INCREASED UPPER AIRWAY SECRETION [None]
  - COUGH [None]
  - HYPERSOMNIA [None]
  - TERMINAL INSOMNIA [None]
  - INFLUENZA [None]
